FAERS Safety Report 4444415-4 (Version None)
Quarter: 2004Q3

REPORT INFORMATION
  Report Type: 
  Country: None (occurrence: None)
  Receive Date: 20040902
  Receipt Date: 20040817
  Transmission Date: 20050211
  Serious: Yes (Hospitalization, Other)
  Sender: FDA-Public Use
  Company Number: 702088

PATIENT
  Sex: Male

DRUGS (1)
  1. AMEVIVE [Suspect]
     Indication: PSORIASIS
     Dates: end: 20040130

REACTIONS (6)
  - ACQUIRED IMMUNODEFICIENCY SYNDROME [None]
  - CELLULITIS [None]
  - FURUNCLE [None]
  - GOUT [None]
  - LOCALISED INFECTION [None]
  - SKIN ODOUR ABNORMAL [None]
